FAERS Safety Report 8143146-7 (Version None)
Quarter: 2012Q1

REPORT INFORMATION
  Report Type: 
  Country: None (occurrence: None)
  Receive Date: 20120217
  Receipt Date: 20120213
  Transmission Date: 20120608
  Serious: No
  Sender: FDA-Public Use
  Company Number: US-PFIZER INC-2012038411

PATIENT

DRUGS (4)
  1. VENLAFAXINE HCL [Suspect]
     Indication: MENOPAUSE
     Dosage: UNK
  2. VENLAFAXINE HCL [Suspect]
     Indication: DEPRESSION
  3. EFFEXOR XR [Suspect]
     Indication: MENOPAUSE
     Dosage: UNK
  4. EFFEXOR XR [Suspect]
     Indication: DEPRESSION

REACTIONS (3)
  - DEPRESSION [None]
  - DRUG INTOLERANCE [None]
  - MENOPAUSAL SYMPTOMS [None]
